FAERS Safety Report 6875277-3 (Version None)
Quarter: 2010Q3

REPORT INFORMATION
  Report Type: 
  Country: None (occurrence: None)
  Receive Date: 20100727
  Receipt Date: 20100715
  Transmission Date: 20110219
  Serious: Yes (Hospitalization)
  Sender: FDA-Public Use
  Company Number: JP-JNJFOC-20100605367

PATIENT
  Age: 63 Year
  Sex: Female
  Weight: 34 kg

DRUGS (11)
  1. REMICADE [Suspect]
     Indication: RHEUMATOID ARTHRITIS
     Dosage: 39 INFUSIONS ON UNSPECIFIED DATES
     Route: 042
  2. REMICADE [Suspect]
     Route: 042
  3. REMICADE [Suspect]
     Route: 042
  4. REMICADE [Suspect]
     Route: 042
  5. METHOTREXATE [Suspect]
     Indication: RHEUMATOID ARTHRITIS
     Route: 048
  6. PREDNISOLONE [Suspect]
     Indication: RHEUMATOID ARTHRITIS
     Route: 048
  7. ANTIBIOTIC [Concomitant]
  8. MAGLAX [Concomitant]
     Indication: CONSTIPATION
     Route: 048
  9. LIMAPROST [Concomitant]
     Indication: THROMBOANGIITIS OBLITERANS
     Dosage: 15 RG
     Route: 048
  10. LOXOPROFEN [Concomitant]
     Indication: RHEUMATOID ARTHRITIS
     Dosage: DAILY DOSE 180 MG
     Route: 048
  11. REBAMIPIDE [Concomitant]
     Indication: GASTRITIS
     Dosage: DAILY DOSE 3 TABS
     Route: 048

REACTIONS (5)
  - ABSCESS LIMB [None]
  - JOINT EFFUSION [None]
  - KNEE ARTHROPLASTY [None]
  - SWELLING [None]
  - ULCER [None]
